FAERS Safety Report 4712041-5 (Version None)
Quarter: 2005Q3

REPORT INFORMATION
  Report Type: 
  Country: None (occurrence: None)
  Receive Date: 20050712
  Receipt Date: 20050627
  Transmission Date: 20060218
  Serious: Yes (Other)
  Sender: FDA-Public Use
  Company Number: JP-JNJFOC-20050700275

PATIENT
  Sex: Female
  Weight: 44 kg

DRUGS (1)
  1. CRAVIT [Suspect]
     Route: 049
     Dates: start: 20050621, end: 20050621

REACTIONS (3)
  - ERYTHEMA [None]
  - FACE OEDEMA [None]
  - FACIAL SPASM [None]
